FAERS Safety Report 14012344 (Version 4)
Quarter: 2017Q4

REPORT INFORMATION
  Report Type: Report from Study
  Country: IL (occurrence: IL)
  Receive Date: 20170926
  Receipt Date: 20171023
  Transmission Date: 20180321
  Serious: Yes (Hospitalization)
  Sender: FDA-Public Use
  Company Number: IL-JNJFOC-20160929049

PATIENT
  Sex: Female

DRUGS (1)
  1. STELARA [Suspect]
     Active Substance: USTEKINUMAB
     Indication: CROHN^S DISEASE
     Dosage: WEEK 0, WEEK 1, WEEK 2, EVERY 8 WEEKS
     Route: 058
     Dates: end: 20170818

REACTIONS (5)
  - Off label use [Unknown]
  - Fistula [Unknown]
  - Drug dose omission [Unknown]
  - Product use in unapproved indication [Unknown]
  - Anal cancer metastatic [Not Recovered/Not Resolved]

NARRATIVE: CASE EVENT DATE: 20170901
